FAERS Safety Report 9803081 (Version 1)
Quarter: 2014Q1

REPORT INFORMATION
  Report Type: Spontaneous
  Country: US (occurrence: US)
  Receive Date: 20140108
  Receipt Date: 20140108
  Transmission Date: 20141002
  Serious: No
  Sender: FDA-Public Use
  Company Number: US-BAYER-2014-003166

PATIENT
  Age: 14 Year
  Sex: Female
  Weight: 66.21 kg

DRUGS (2)
  1. ALEVE LIQUID GELS [Suspect]
     Indication: BACK PAIN
     Dosage: 1 DF, ONCE
     Route: 048
     Dates: start: 20140107, end: 20140107
  2. IRON [Concomitant]

REACTIONS (1)
  - Somnolence [Not Recovered/Not Resolved]
